FAERS Safety Report 7096285-6 (Version None)
Quarter: 2010Q4

REPORT INFORMATION
  Report Type: 
  Country: None (occurrence: None)
  Receive Date: 20101111
  Receipt Date: 20101109
  Transmission Date: 20110411
  Serious: Yes (Congenital Anomaly, Other)
  Sender: FDA-Public Use
  Company Number: GB-BRISTOL-MYERS SQUIBB COMPANY-14053466

PATIENT
  Age: 33 Year
  Sex: Female

DRUGS (12)
  1. SUSTIVA [Suspect]
     Indication: HIV INFECTION
     Dosage: PTC TO 4 WEEKS POST LMP TRANSPLACENTAL,CAPS
     Route: 048
     Dates: start: 20021001, end: 20070816
  2. NEVIRAPINE [Suspect]
     Indication: HIV INFECTION
     Dosage: 3 WEEKS POST LMP TO 7 WEEKS POST LMP, ALSO FROM 16-30AUG2007,TRANSPLACENTAL
     Route: 048
     Dates: start: 20070801, end: 20070905
  3. KIVEXA [Suspect]
     Indication: HIV INFECTION
     Dosage: 1 DOSAGE FORM= 1 TABLET (ABACAVIR 600MG+LAMIVUDINE 300MG).PTC TO 9 WEEKS. TRANSPLACENTAL;16JUL2007
     Route: 048
     Dates: start: 20070101, end: 20070901
  4. COMBIVIR [Suspect]
     Indication: HIV INFECTION
     Dosage: 1 DF=TAB(ZIDO300+LAMI150MG),DISCONT:5SEP07+STARTED:SEP07,9 1/2W:DELIV DISCON AT 9W BFR DELIVERY
     Route: 048
     Dates: start: 20070801, end: 20070905
  5. KALETRA [Suspect]
     Indication: HIV INFECTION
     Dosage: 1DF=4TABS/CAPS(LOPINAVIR200MG+RITONAVIR50MG).9 1/2 WEEKS TO DELIVERY. TRANSPLACENTAL.TAKEN 20SEP07
     Route: 048
     Dates: start: 20070920
  6. LAMIVUDINE [Suspect]
  7. LOPINAVIR [Suspect]
  8. RITONAVIR [Suspect]
  9. VIRAMUNE [Suspect]
     Indication: HIV INFECTION
     Dosage: TRANSPLACENTAL; 16AUG2007 TO 30AUG2007
     Route: 048
     Dates: start: 20070816, end: 20070830
  10. ZIDOVUDINE [Suspect]
  11. ZIAGEN [Suspect]
     Indication: HIV INFECTION
     Route: 048
     Dates: start: 20070101, end: 20070901
  12. EPZICOM [Suspect]
     Indication: HIV INFECTION
     Dates: start: 20070101

REACTIONS (14)
  - ABORTION INDUCED [None]
  - CARDIAC MALPOSITION [None]
  - CONGENITAL DIAPHRAGMATIC ANOMALY [None]
  - CONGENITAL HEPATOBILIARY ANOMALY [None]
  - DEFORMITY THORAX [None]
  - DIAPHRAGMATIC APLASIA [None]
  - DRUG EXPOSURE DURING PREGNANCY [None]
  - EXOMPHALOS [None]
  - FOETAL DISORDER [None]
  - HEPATIC DISPLACEMENT [None]
  - MICROCEPHALY [None]
  - PNEUMOTHORAX [None]
  - PREGNANCY [None]
  - RASH [None]
